FAERS Safety Report 20000862 (Version 2)
Quarter: 2021Q4

REPORT INFORMATION
  Report Type: Report from Study
  Country: US (occurrence: US)
  Receive Date: 20211027
  Receipt Date: 20211211
  Transmission Date: 20220303
  Serious: Yes (Hospitalization, Other)
  Sender: FDA-Public Use
  Company Number: US-NOVARTISPH-NVSC2021US241506

PATIENT
  Age: 55 Year
  Sex: Male
  Weight: 70.824 kg

DRUGS (6)
  1. LUCENTIS [Suspect]
     Active Substance: RANIBIZUMAB
     Indication: Eye injury
     Dosage: BIW (ALTERNATE EACH EYE)
     Route: 065
     Dates: start: 202109
  2. LUCENTIS [Suspect]
     Active Substance: RANIBIZUMAB
     Indication: Diabetes mellitus
  3. LUCENTIS [Suspect]
     Active Substance: RANIBIZUMAB
     Indication: Diabetic retinopathy
  4. LUCENTIS [Suspect]
     Active Substance: RANIBIZUMAB
     Indication: Macular oedema
  5. METFORMIN [Suspect]
     Active Substance: METFORMIN HYDROCHLORIDE
     Indication: Diabetes mellitus
     Dosage: UNK
     Route: 065
     Dates: end: 202108
  6. AVASTIN [Suspect]
     Active Substance: BEVACIZUMAB
     Indication: Eye injury
     Dosage: 1 DOSAGE FORM, QMO (ALTERNATE EACH EVERY 2 WEEKS)
     Route: 065
     Dates: start: 2018, end: 202107

REACTIONS (10)
  - Infection [Recovered/Resolved]
  - Hypertension [Recovered/Resolved]
  - Heart rate increased [Not Recovered/Not Resolved]
  - Renal injury [Unknown]
  - Blindness [Recovered/Resolved]
  - Localised infection [Unknown]
  - Swelling [Not Recovered/Not Resolved]
  - Head titubation [Unknown]
  - Off label use [Unknown]
  - Off label use [Unknown]

NARRATIVE: CASE EVENT DATE: 20201101
